FAERS Safety Report 6473650-9 (Version None)
Quarter: 2009Q4

REPORT INFORMATION
  Report Type: 
  Country: None (occurrence: None)
  Receive Date: 20091204
  Receipt Date: 20091015
  Transmission Date: 20100525
  Serious: Yes (Hospitalization)
  Sender: FDA-Public Use
  Company Number: FR-BAYER-200934593GPV

PATIENT
  Age: 29 Year
  Sex: Female

DRUGS (6)
  1. ADALATE 10 MG [Suspect]
     Indication: THREATENED LABOUR
     Dosage: UNIT DOSE: 10 MG
     Dates: start: 20090916, end: 20090916
  2. SUNSET YELLOW FCF (E110/C.I. 15985) [Suspect]
     Indication: DRUG USE FOR UNKNOWN INDICATION
  3. NICARDIPINE HCL [Concomitant]
     Route: 065
     Dates: start: 20090831, end: 20090101
  4. NICARDIPINE HCL [Concomitant]
     Route: 065
     Dates: start: 20090101, end: 20090101
  5. NICARDIPINE HCL [Concomitant]
     Dates: end: 20090101
  6. KARDEGIC [Concomitant]
     Route: 065
     Dates: end: 20090905

REACTIONS (2)
  - ADVERSE EVENT [None]
  - TACHYCARDIA [None]
